FAERS Safety Report 5008416-X (Version None)
Quarter: 2006Q2

REPORT INFORMATION
  Report Type: 
  Country: None (occurrence: None)
  Receive Date: 20060523
  Receipt Date: 20060503
  Transmission Date: 20061013
  Serious: Yes (Other)
  Sender: FDA-Public Use
  Company Number: PHEH2006US05848

PATIENT
  Age: 71 Year
  Sex: Male

DRUGS (10)
  1. ZOMETA [Suspect]
     Indication: MULTIPLE MYELOMA
     Dosage: 4 MG, MONTHLY
     Dates: start: 20050110, end: 20060410
  2. RENAGEL [Concomitant]
     Dosage: 800MG TID
  3. AMIODARONE HCL [Concomitant]
     Dosage: 200MG QD
  4. ASPIRIN [Concomitant]
     Dosage: 325MG QD
  5. FOLIC ACID [Concomitant]
     Dosage: 1MG QD
  6. CYTOMEL [Concomitant]
     Dosage: 25 MCG QD
  7. DOCUSATE [Concomitant]
     Dosage: BID
  8. PROTONIX [Concomitant]
     Dosage: 40GM QD
  9. LIPITOR [Concomitant]
     Dosage: 40MG QD
  10. ACETAMINOPHEN AND HYDROCODONE BITARTRATE [Concomitant]
     Dosage: 1-2 TABS Q6H

REACTIONS (6)
  - BONE DISORDER [None]
  - OSTEONECROSIS [None]
  - PAIN IN JAW [None]
  - SOFT TISSUE INFECTION [None]
  - SWELLING [None]
  - TOOTHACHE [None]
